FAERS Safety Report 20659466 (Version 1)
Quarter: 2022Q1

REPORT INFORMATION
  Report Type: Spontaneous
  Country: CN (occurrence: CN)
  Receive Date: 20220331
  Receipt Date: 20220331
  Transmission Date: 20220424
  Serious: Yes (Other)
  Sender: FDA-Public Use
  Company Number: CN-BAYER-2022A045368

PATIENT
  Age: 85 Year
  Sex: Male

DRUGS (1)
  1. AVELOX [Suspect]
     Active Substance: MOXIFLOXACIN HYDROCHLORIDE
     Indication: Anti-infective therapy
     Dosage: 0.4 G, QD
     Route: 041
     Dates: start: 20211224, end: 20211225

REACTIONS (3)
  - Toxic skin eruption [Recovered/Resolved]
  - Drug eruption [Recovered/Resolved]
  - Dermatitis infected [Recovered/Resolved]

NARRATIVE: CASE EVENT DATE: 20211225
